FAERS Safety Report 24169288 (Version 2)
Quarter: 2025Q4

REPORT INFORMATION
  Report Type: Report from Study
  Country: US (occurrence: US)
  Receive Date: 20240802
  Receipt Date: 20251013
  Transmission Date: 20260117
  Serious: Yes (Other)
  Sender: INCYTE
  Company Number: US-INCYTE CORPORATION-2024IN007981

PATIENT

DRUGS (2)
  1. JAKAFI [Suspect]
     Active Substance: RUXOLITINIB
     Indication: Chronic graft versus host disease
     Dosage: 10 MILLIGRAM, BID
     Route: 065
  2. PREDNISONE [Concomitant]
     Active Substance: PREDNISONE
     Indication: Product used for unknown indication
     Dosage: UNK
     Route: 065

REACTIONS (6)
  - Tongue disorder [Recovered/Resolved]
  - Skin ulcer [Unknown]
  - Hypotension [Not Recovered/Not Resolved]
  - Weight decreased [Unknown]
  - Product availability issue [Not Recovered/Not Resolved]
  - Rash [Unknown]
